FAERS Safety Report 19783174 (Version 1)
Quarter: 2021Q3

REPORT INFORMATION
  Report Type: Spontaneous
  Country: US (occurrence: US)
  Receive Date: 20210901
  Receipt Date: 20210901
  Transmission Date: 20211014
  Serious: Yes (Hospitalization)
  Sender: FDA-Public Use
  Company Number: None

PATIENT
  Age: 74 Year
  Sex: Female

DRUGS (26)
  1. ACETAMINOPHN [Concomitant]
  2. ALBUTEROL AER HFA [Concomitant]
  3. ASPIRIN. [Concomitant]
     Active Substance: ASPIRIN
  4. AZATHIOPRINE. [Concomitant]
     Active Substance: AZATHIOPRINE
  5. DEXILANT [Concomitant]
     Active Substance: DEXLANSOPRAZOLE
  6. COREG [Concomitant]
     Active Substance: CARVEDILOL
  7. CYMBALTA [Concomitant]
     Active Substance: DULOXETINE HYDROCHLORIDE
  8. POTASSIUM CHLORIDE ER [Concomitant]
     Active Substance: POTASSIUM CHLORIDE
  9. AMPYRA [Concomitant]
     Active Substance: DALFAMPRIDINE
  10. VITAMIN D3 [Concomitant]
     Active Substance: CHOLECALCIFEROL
  11. ESBRIET [Suspect]
     Active Substance: PIRFENIDONE
     Indication: INTERSTITIAL LUNG DISEASE
     Route: 048
     Dates: start: 20210715
  12. FERROUS SULF [Concomitant]
     Active Substance: FERROUS SULFATE
  13. LISINOPRIL. [Concomitant]
     Active Substance: LISINOPRIL
  14. MODAFINIL. [Concomitant]
     Active Substance: MODAFINIL
  15. FAMOTIDINE. [Concomitant]
     Active Substance: FAMOTIDINE
  16. LEVOTHYROXIN [Concomitant]
     Active Substance: LEVOTHYROXINE
  17. PRIMIDONE. [Concomitant]
     Active Substance: PRIMIDONE
  18. SINGULAIR [Concomitant]
     Active Substance: MONTELUKAST SODIUM
  19. ATORVASTATIN [Concomitant]
     Active Substance: ATORVASTATIN
  20. BACLOFEN. [Concomitant]
     Active Substance: BACLOFEN
  21. DALFAMPRIDINE ER [Concomitant]
     Active Substance: DALFAMPRIDINE
  22. DIPHEN/ATROP [Concomitant]
     Active Substance: ATROPINE SULFATE\DIPHENOXYLATE
  23. FLONASE ALGY SPR [Concomitant]
  24. MULTI VITAMIN [Concomitant]
     Active Substance: VITAMINS
  25. MINERALS [Concomitant]
     Active Substance: MINERALS
  26. ZYRTEC ALLGY CAP [Concomitant]

REACTIONS (2)
  - COVID-19 [None]
  - Pneumonia [None]

NARRATIVE: CASE EVENT DATE: 20210801
